FAERS Safety Report 4748742-2 (Version None)
Quarter: 2005Q3

REPORT INFORMATION
  Report Type: 
  Country: None (occurrence: None)
  Receive Date: 20050817
  Receipt Date: 20050805
  Transmission Date: 20060218
  Serious: Yes (Other)
  Sender: FDA-Public Use
  Company Number: 2005113121

PATIENT
  Age: 71 Year
  Sex: Female
  Weight: 70.3075 kg

DRUGS (9)
  1. AROMASIN [Suspect]
     Indication: BREAST CANCER METASTATIC
     Dosage: 25 MG (25 MG, DAILY), ORAL
     Route: 048
     Dates: start: 20050501
  2. GABAPENTIN [Suspect]
     Indication: NERVE INJURY
     Dosage: 400 MG
     Dates: start: 20050601
  3. ACCUPRIL [Concomitant]
  4. PRAVACHOL [Concomitant]
  5. ZOMETA [Concomitant]
  6. MULTIVITAMIN [Concomitant]
  7. CALCIUM (CALCIUM) [Concomitant]
  8. ACETYLSALICYLIC ACID SRT [Concomitant]
  9. FISH OIL (FISH OIL) [Concomitant]

REACTIONS (5)
  - CELLULITIS [None]
  - LYMPHOEDEMA [None]
  - OEDEMA PERIPHERAL [None]
  - POST PROCEDURAL COMPLICATION [None]
  - THERAPY NON-RESPONDER [None]
